FAERS Safety Report 7798440-6 (Version None)
Quarter: 2011Q4

REPORT INFORMATION
  Report Type: 
  Country: None (occurrence: None)
  Receive Date: 20111005
  Receipt Date: 20110930
  Transmission Date: 20120403
  Serious: Yes (Death)
  Sender: FDA-Public Use
  Company Number: US-GILEAD-2011-0043747

PATIENT

DRUGS (6)
  1. LETAIRIS [Suspect]
     Indication: PULMONARY HYPERTENSION
     Dosage: 5 UNK, UNK
     Route: 048
  2. EPOPROSTENOL SODIUM [Concomitant]
  3. DIGOXIN [Concomitant]
  4. LETAIRIS [Suspect]
     Dosage: 10 MG, UNK
     Route: 048
     Dates: start: 20110601
  5. REVATIO [Concomitant]
  6. SPIRONOLACTONE [Concomitant]

REACTIONS (1)
  - PULMONARY HYPERTENSION [None]
